FAERS Safety Report 8601043-4 (Version None)
Quarter: 2012Q3

REPORT INFORMATION
  Report Type: 
  Country: None (occurrence: None)
  Receive Date: 20120817
  Receipt Date: 20120810
  Transmission Date: 20120928
  Serious: Yes (Death, Hospitalization, Other)
  Sender: FDA-Public Use
  Company Number: US-009507513-1207USA012383

PATIENT

DRUGS (4)
  1. HEPARIN SODIUM [Suspect]
     Indication: ELECTROCARDIOGRAM ST SEGMENT ELEVATION
  2. INTEGRILIN [Suspect]
     Indication: MYOCARDIAL INFARCTION
     Route: 042
  3. INTEGRILIN [Suspect]
     Indication: ELECTROCARDIOGRAM ST SEGMENT ELEVATION
  4. HEPARIN SODIUM [Suspect]
     Indication: MYOCARDIAL INFARCTION
     Route: 042

REACTIONS (3)
  - ENDOTRACHEAL INTUBATION [None]
  - HAEMOPTYSIS [None]
  - DEATH [None]
